FAERS Safety Report 13455378 (Version 1)
Quarter: 2017Q2

REPORT INFORMATION
  Report Type: Spontaneous
  Country: FR (occurrence: FR)
  Receive Date: 20170418
  Receipt Date: 20170418
  Transmission Date: 20170830
  Serious: Yes (Death)
  Sender: FDA-Public Use
  Company Number: FR-ABBVIE-17P-163-1900751-00

PATIENT
  Sex: Female

DRUGS (1)
  1. HUMIRA [Suspect]
     Active Substance: ADALIMUMAB
     Indication: PSORIASIS
     Route: 058

REACTIONS (7)
  - Renal failure [Fatal]
  - Intestinal perforation [Fatal]
  - Soft tissue disorder [Fatal]
  - Intestinal sepsis [Fatal]
  - Gastrointestinal anastomotic leak [Fatal]
  - Fluid retention [Fatal]
  - Liver disorder [Fatal]
